FAERS Safety Report 16425727 (Version 3)
Quarter: 2019Q4

REPORT INFORMATION
  Report Type: Spontaneous
  Country: US (occurrence: US)
  Receive Date: 20190613
  Receipt Date: 20191107
  Transmission Date: 20200122
  Serious: No
  Sender: FDA-Public Use
  Company Number: US-PFIZER INC-2019245994

PATIENT
  Age: 59 Year
  Sex: Male

DRUGS (2)
  1. XELJANZ XR [Suspect]
     Active Substance: TOFACITINIB CITRATE
     Dosage: 11 MG, DAILY [11 MG ONE TABLET EVERY DAY]
     Dates: start: 20181201, end: 20190703
  2. XELJANZ XR [Suspect]
     Active Substance: TOFACITINIB CITRATE
     Dosage: 11 MG, UNK
     Dates: start: 20190610, end: 20191030

REACTIONS (5)
  - Rash [Unknown]
  - Condition aggravated [Unknown]
  - Drug ineffective [Unknown]
  - Skin disorder [Unknown]
  - Arthralgia [Not Recovered/Not Resolved]
